FAERS Safety Report 10996549 (Version 1)
Quarter: 2015Q1

REPORT INFORMATION
  Report Type: Spontaneous
  Country: US (occurrence: None)
  Receive Date: 20150331
  Receipt Date: 20150331
  Transmission Date: 20150721
  Serious: Yes (Hospitalization)
  Sender: FDA-Public Use
  Company Number: PHEH2014US015821

PATIENT
  Age: 82 Year
  Sex: Female

DRUGS (7)
  1. EXELON PATCH [Suspect]
     Active Substance: RIVASTIGMINE
     Route: 062
  2. METFORMIN [Concomitant]
     Active Substance: METFORMIN HYDROCHLORIDE
  3. GLIPIZIDE. [Concomitant]
     Active Substance: GLIPIZIDE
  4. ASPIRIN (ACETYLSALICYCLIC ACID) [Concomitant]
     Active Substance: ASPIRIN
  5. DIOVAN [Concomitant]
     Active Substance: VALSARTAN
  6. LIPITOR [Concomitant]
     Active Substance: ATORVASTATIN CALCIUM
  7. LISINOPRIL. [Concomitant]
     Active Substance: LISINOPRIL

REACTIONS (5)
  - Dizziness [None]
  - Headache [None]
  - Heart rate decreased [None]
  - Memory impairment [None]
  - Nausea [None]
